FAERS Safety Report 14675579 (Version 1)
Quarter: 2018Q1

REPORT INFORMATION
  Report Type: Spontaneous
  Country: NL (occurrence: NL)
  Receive Date: 20180323
  Receipt Date: 20180323
  Transmission Date: 20180509
  Serious: Yes (Other)
  Sender: FDA-Public Use
  Company Number: NL-SA-2018SA059850

PATIENT
  Age: 65 Year
  Sex: Male

DRUGS (9)
  1. DOCETAXEL. [Suspect]
     Active Substance: DOCETAXEL
     Indication: PROSTATE CANCER
     Route: 065
  2. CLEMASTINE [Concomitant]
     Active Substance: CLEMASTINE
  3. ABIRATERONE ACETATE. [Suspect]
     Active Substance: ABIRATERONE ACETATE
     Indication: PROSTATE CANCER
     Route: 065
  4. FENTANYL. [Concomitant]
     Active Substance: FENTANYL
  5. PREDNISOLONE. [Concomitant]
     Active Substance: PREDNISOLONE
     Indication: PROSTATE CANCER
     Route: 065
  6. PANTOPRAZOLE [Concomitant]
     Active Substance: PANTOPRAZOLE
  7. CARBAMAZEPINE. [Suspect]
     Active Substance: CARBAMAZEPINE
     Indication: NEUROPATHY PERIPHERAL
     Route: 065
  8. DENOSUMAB [Concomitant]
     Active Substance: DENOSUMAB
  9. LEUPRORELIN [Concomitant]
     Active Substance: LEUPROLIDE ACETATE

REACTIONS (6)
  - Thrombocytopenia [Unknown]
  - Drug level decreased [Recovered/Resolved]
  - Potentiating drug interaction [Unknown]
  - Leukopenia [Unknown]
  - Anaemia [Unknown]
  - Toxicity to various agents [Unknown]
